FAERS Safety Report 11433523 (Version 1)
Quarter: 2015Q3

REPORT INFORMATION
  Report Type: Spontaneous
  Country: JP (occurrence: None)
  Receive Date: 20150827
  Receipt Date: 20150827
  Transmission Date: 20151125
  Serious: Yes (Other)
  Sender: FDA-Public Use
  Company Number: COR_00368_2015

PATIENT
  Age: 28 Year
  Sex: Male

DRUGS (5)
  1. PIRARUBICIN [Suspect]
     Active Substance: PIRARUBICIN
     Indication: MATURE B-CELL TYPE ACUTE LEUKAEMIA
  2. ETOPOSIDE (ETOPOSIDE) [Suspect]
     Active Substance: ETOPOSIDE
     Indication: MATURE B-CELL TYPE ACUTE LEUKAEMIA
     Dosage: 0.9 G/M2
  3. METHOTREXATE (METHOTREXATE) [Suspect]
     Active Substance: METHOTREXATE
     Indication: MATURE B-CELL TYPE ACUTE LEUKAEMIA
  4. CYCLOPHOSPHAMIDE (CYCLOPHOSPHAMIDE) [Suspect]
     Active Substance: CYCLOPHOSPHAMIDE
     Indication: MATURE B-CELL TYPE ACUTE LEUKAEMIA
     Dosage: 66 G/M2
  5. CYTARABINE (CYTARABINE) [Suspect]
     Active Substance: CYTARABINE
     Indication: MATURE B-CELL TYPE ACUTE LEUKAEMIA
     Dosage: 36 G/M2

REACTIONS (7)
  - Pleural fibrosis [None]
  - Autoimmune disorder [None]
  - Obliterative bronchiolitis [None]
  - Lung infection [None]
  - Pulmonary toxicity [None]
  - Pneumothorax [None]
  - Ankylosing spondylitis [None]
